FAERS Safety Report 11441421 (Version 1)
Quarter: 2015Q3

REPORT INFORMATION
  Report Type: Spontaneous
  Country: US (occurrence: US)
  Receive Date: 20150901
  Receipt Date: 20150901
  Transmission Date: 20151125
  Serious: Yes (Hospitalization, Other)
  Sender: FDA-Public Use
  Company Number: US-SHIRE-US201510699

PATIENT
  Age: 6 Year
  Sex: Male
  Weight: 40.82 kg

DRUGS (1)
  1. VYVANSE [Suspect]
     Active Substance: LISDEXAMFETAMINE DIMESYLATE
     Indication: ATTENTION DEFICIT/HYPERACTIVITY DISORDER
     Dosage: 20 MG, 1X/DAY:QD (EXCEPT FOR SUMMERS AND WEEKENDS)
     Route: 048

REACTIONS (2)
  - Dermatillomania [Unknown]
  - Hospitalisation [Unknown]
